FAERS Safety Report 17472704 (Version 1)
Quarter: 2020Q1

REPORT INFORMATION
  Report Type: Spontaneous
  Country: US (occurrence: US)
  Receive Date: 20200218
  Receipt Date: 20200218
  Transmission Date: 20200409
  Serious: Yes (Hospitalization)
  Sender: FDA-Public Use
  Company Number: None

PATIENT
  Age: 62 Year
  Sex: Male

DRUGS (1)
  1. EVEROLIMUS TAB 5MG [Suspect]
     Active Substance: EVEROLIMUS
     Indication: HEPATITIS C CORE ANTIBODY
     Route: 048
     Dates: start: 202001

REACTIONS (1)
  - Gout [None]

NARRATIVE: CASE EVENT DATE: 20200128
